FAERS Safety Report 5833145-X (Version None)
Quarter: 2008Q3

REPORT INFORMATION
  Report Type: 
  Country: None (occurrence: None)
  Receive Date: 20080731
  Receipt Date: 20080715
  Transmission Date: 20090109
  Serious: Yes (Hospitalization, Other)
  Sender: FDA-Public Use
  Company Number: 2008US001694

PATIENT
  Age: 64 Year
  Sex: Male
  Weight: 83 kg

DRUGS (15)
  1. PROGRAF [Suspect]
     Indication: RENAL TRANSPLANT
     Dosage: 5.5 MG, UID/QD, ORAL
     Route: 048
  2. PROGRAF [Suspect]
     Indication: RENAL TRANSPLANT
     Dosage: 1.5 MG, CONTINUOUS, PARENTERAL
     Route: 051
     Dates: start: 20080624
  3. CASTOR OIL(RICINUS COMMUNIS OIL) [Suspect]
     Indication: DRUG USE FOR UNKNOWN INDICATION
  4. ALBUTEROL (SALBUTAMOL SULFATE) [Concomitant]
  5. TENORMIN [Concomitant]
  6. HEPARIN [Concomitant]
  7. INSULIN (INSULIN) [Concomitant]
  8. HYDROCORTISONE [Concomitant]
  9. LOPRESSOR [Concomitant]
  10. PROTONIX [Concomitant]
  11. INVANZ (ERTAPENEM SODIUM) [Concomitant]
  12. TPN (TYROSINE, NICOTINAMIDE) [Concomitant]
  13. LIPID EMULSION [Concomitant]
  14. CARDENE [Concomitant]
  15. VANCOMYCIN HCL [Concomitant]

REACTIONS (5)
  - DYSKINESIA [None]
  - EYE DISORDER [None]
  - LARGE INTESTINE PERFORATION [None]
  - RESTLESSNESS [None]
  - UNRESPONSIVE TO STIMULI [None]
